FAERS Safety Report 4674577-5 (Version None)
Quarter: 2005Q2

REPORT INFORMATION
  Report Type: 
  Country: None (occurrence: None)
  Receive Date: 20050526
  Receipt Date: 20050512
  Transmission Date: 20051028
  Serious: Yes (Hospitalization)
  Sender: FDA-Public Use
  Company Number: FR-AMGEN-UK133062

PATIENT
  Age: 60 Year
  Sex: Male

DRUGS (1)
  1. MIMPARA [Suspect]
     Indication: DRUG USE FOR UNKNOWN INDICATION
     Route: 048

REACTIONS (5)
  - ABDOMINAL PAIN UPPER [None]
  - CARDIOGENIC SHOCK [None]
  - CHOLANGIOLITIS [None]
  - INFLAMMATION [None]
  - TREATMENT NONCOMPLIANCE [None]
